FAERS Safety Report 6634461-4 (Version None)
Quarter: 2010Q1

REPORT INFORMATION
  Report Type: 
  Country: None (occurrence: None)
  Receive Date: 20100315
  Receipt Date: 20100301
  Transmission Date: 20100710
  Serious: Yes (Other)
  Sender: FDA-Public Use
  Company Number: NL-AMGEN-US398452

PATIENT

DRUGS (1)
  1. ENBREL [Suspect]
     Indication: JUVENILE ARTHRITIS
     Dosage: DOSE  AND FREQUENCY NOT SPECIFIED
     Route: 065

REACTIONS (1)
  - INFLAMMATORY BOWEL DISEASE [None]
